FAERS Safety Report 19118952 (Version 1)
Quarter: 2021Q2

REPORT INFORMATION
  Report Type: Spontaneous
  Country: JP (occurrence: JP)
  Receive Date: 20210411
  Receipt Date: 20210411
  Transmission Date: 20210717
  Serious: Yes (Hospitalization)
  Sender: FDA-Public Use
  Company Number: JP-JNJFOC-20210409047

PATIENT
  Sex: Male

DRUGS (2)
  1. ERLEADA [Suspect]
     Active Substance: APALUTAMIDE
     Indication: PROSTATE CANCER
     Dosage: DOSE UNKNOWN
     Route: 048
     Dates: start: 202101, end: 202103
  2. GONAX [Suspect]
     Active Substance: DEGARELIX
     Indication: PROSTATE CANCER
     Dosage: DOSE UNKNOWN
     Route: 058
     Dates: start: 202101, end: 202103

REACTIONS (3)
  - Taste disorder [Unknown]
  - Aptyalism [Unknown]
  - Blood glucose increased [Not Recovered/Not Resolved]

NARRATIVE: CASE EVENT DATE: 202103
